FAERS Safety Report 8852080 (Version 1)
Quarter: 2012Q4

REPORT INFORMATION
  Report Type: Spontaneous
  Country: US (occurrence: None)
  Receive Date: 20121022
  Receipt Date: 20121022
  Transmission Date: 20130627
  Serious: No
  Sender: FDA-Public Use
  Company Number: None

PATIENT
  Age: 55 Year
  Sex: Female
  Weight: 85.73 kg

DRUGS (1)
  1. METHYLPREDNISOLONE [Suspect]
     Indication: FIBROMYALGIA
     Dosage: 80mg x1dose IM
     Route: 030
     Dates: start: 20120913, end: 20120913

REACTIONS (1)
  - No adverse event [None]
